FAERS Safety Report 8997557 (Version 1)
Quarter: 2013Q1

REPORT INFORMATION
  Report Type: Spontaneous
  Country: CA (occurrence: CA)
  Receive Date: 20130104
  Receipt Date: 20130104
  Transmission Date: 20140127
  Serious: Yes (Other)
  Sender: FDA-Public Use
  Company Number: CA-TEVA-378796USA

PATIENT
  Age: 48 Year
  Sex: Male

DRUGS (4)
  1. VINCRISTINE [Suspect]
     Indication: T-CELL LYMPHOMA
     Dosage: CYCLE 4
  2. PREDNISONE [Suspect]
     Indication: T-CELL LYMPHOMA
     Dosage: CYCLE 4
  3. CYCLOPHOSPHAMIDE [Suspect]
     Indication: T-CELL LYMPHOMA
     Dosage: CYCLE 4
  4. DOXORUBICIN [Suspect]
     Indication: T-CELL LYMPHOMA
     Dosage: CYCLE 4

REACTIONS (1)
  - Pneumatosis intestinalis [Recovering/Resolving]
